FAERS Safety Report 9473341 (Version 2)
Quarter: 2013Q3

REPORT INFORMATION
  Report Type: Spontaneous
  Country: US (occurrence: US)
  Receive Date: 20130823
  Receipt Date: 20130823
  Transmission Date: 20140515
  Serious: No
  Sender: FDA-Public Use
  Company Number: US-BRISTOL-MYERS SQUIBB COMPANY-18902247

PATIENT
  Age: 51 Year
  Sex: Female
  Weight: 73.01 kg

DRUGS (14)
  1. SPRYCEL [Suspect]
     Indication: NEOPLASM MALIGNANT
     Dates: start: 200811
  2. GLEEVEC [Suspect]
     Indication: NEOPLASM MALIGNANT
  3. HYDROCHLOROTHIAZIDE [Concomitant]
  4. METOPROLOL [Concomitant]
     Indication: BLOOD PRESSURE
  5. KEPPRA [Concomitant]
     Indication: MIGRAINE
  6. GABAPENTIN [Concomitant]
  7. STADOL [Concomitant]
     Route: 045
  8. SUMATRIPTAN [Concomitant]
  9. PROZAC [Concomitant]
  10. CYMBALTA [Concomitant]
  11. PETROLEUM [Concomitant]
     Dosage: COMPOUND-PETROLEUM BASE/LIDOCAINE/NITROGLYCERIN
  12. WARFARIN [Concomitant]
  13. AMBIEN [Concomitant]
  14. HYOSCYAMINE [Concomitant]
     Indication: ANXIETY
     Dosage: SYMAX-XR

REACTIONS (6)
  - Weight decreased [Unknown]
  - Fatigue [Unknown]
  - Stress [Unknown]
  - Nausea [Unknown]
  - Myalgia [Unknown]
  - Decreased appetite [Unknown]
